FAERS Safety Report 9644815 (Version 1)
Quarter: 2013Q4

REPORT INFORMATION
  Report Type: Spontaneous
  Country: US (occurrence: US)
  Receive Date: 20131025
  Receipt Date: 20131025
  Transmission Date: 20140711
  Serious: No
  Sender: FDA-Public Use
  Company Number: US-PFIZER INC-2013301462

PATIENT
  Age: 84 Year
  Sex: Female

DRUGS (7)
  1. SUTENT [Suspect]
     Indication: CHRONIC MYELOID LEUKAEMIA
     Dosage: UNK
  2. ADVAIR DISKUS [Concomitant]
     Dosage: UNK
  3. ADVAIR HFA [Concomitant]
     Dosage: UNK
  4. COMBIVENT [Concomitant]
     Dosage: UNK
  5. GABAPENTIN [Concomitant]
     Dosage: UNK
  6. SINGULAIR [Concomitant]
     Dosage: UNK
  7. THEO-24 [Concomitant]
     Dosage: UNK

REACTIONS (4)
  - Anaemia [Unknown]
  - Abdominal pain upper [Unknown]
  - Diarrhoea [Unknown]
  - Asthenia [Unknown]
